FAERS Safety Report 9198384 (Version 1)
Quarter: 2013Q1

REPORT INFORMATION
  Report Type: Spontaneous
  Country: US (occurrence: None)
  Receive Date: 20130327
  Receipt Date: 20130327
  Transmission Date: 20140127
  Serious: Yes (Death)
  Sender: FDA-Public Use
  Company Number: None

PATIENT
  Age: 48 Year
  Sex: Male
  Weight: 72.58 kg

DRUGS (3)
  1. MONTELUKAST SODIUM [Suspect]
     Indication: ASTHMA
     Dosage: 1 PILL DAILY ORAL
     Dates: start: 20100723, end: 20121116
  2. ADVAIR DISKUS [Concomitant]
  3. SPIRIVA HANDIHALER CAPS [Concomitant]

REACTIONS (1)
  - Completed suicide [None]
